FAERS Safety Report 11102235 (Version 1)
Quarter: 2015Q2

REPORT INFORMATION
  Report Type: Spontaneous
  Country: DE (occurrence: DE)
  Receive Date: 20150511
  Receipt Date: 20150511
  Transmission Date: 20150821
  Serious: Yes (Other)
  Sender: FDA-Public Use
  Company Number: DE-ACTELION-A-CH2015-116451

PATIENT
  Age: 1 Year
  Sex: Female

DRUGS (1)
  1. OPSUMIT [Suspect]
     Active Substance: MACITENTAN
     Indication: ATRIOVENTRICULAR SEPTAL DEFECT
     Route: 048

REACTIONS (3)
  - Transaminases increased [Unknown]
  - Hepatic congestion [Unknown]
  - Cardiac failure [Unknown]
